FAERS Safety Report 9252137 (Version 3)
Quarter: 2013Q2

REPORT INFORMATION
  Report Type: Spontaneous
  Country: IT (occurrence: IT)
  Receive Date: 20130424
  Receipt Date: 20130613
  Transmission Date: 20140414
  Serious: Yes (Hospitalization)
  Sender: FDA-Public Use
  Company Number: PHHY2012IT072300

PATIENT
  Age: 40 Year
  Sex: Female

DRUGS (13)
  1. ARIPIPRAZOLE [Suspect]
     Indication: BIPOLAR I DISORDER
     Dosage: 20 MG, PER DAY
     Dates: start: 2008
  2. OLANZAPINE [Suspect]
     Indication: BIPOLAR I DISORDER
     Dosage: 2.5 MG, PER DAY
  3. CLOTIAPINE [Suspect]
     Indication: BIPOLAR I DISORDER
  4. ZUCLOPENTHIXOL [Suspect]
     Indication: BIPOLAR I DISORDER
     Route: 030
  5. LORAZEPAM [Concomitant]
     Indication: RHABDOMYOLYSIS
     Dosage: UNK UKN, UNK
     Route: 042
  6. LORAZEPAM [Concomitant]
     Dosage: 16 MG, UNK
     Route: 042
  7. LORAZEPAM [Concomitant]
     Dosage: 16 MG, UNK
     Route: 042
  8. LORAZEPAM [Concomitant]
     Dosage: 16 MG, UNK
     Route: 042
  9. LORAZEPAM [Concomitant]
     Dosage: 8 MG, UNK
     Route: 042
  10. LORAZEPAM [Concomitant]
     Dosage: 5 MG, UNK
     Route: 048
  11. LORAZEPAM [Concomitant]
     Dosage: 8.25 MG, UNK
     Route: 048
  12. LORAZEPAM [Concomitant]
     Dosage: 7.5 MG, UNK
     Route: 048
  13. LAMOTRIGINE [Concomitant]
     Dosage: 25 MG, PER DAY

REACTIONS (22)
  - Catatonia [Recovered/Resolved]
  - Neuroleptic malignant syndrome [Recovered/Resolved]
  - Rhabdomyolysis [Recovered/Resolved]
  - Pyrexia [Recovered/Resolved]
  - Leukocytosis [Recovered/Resolved]
  - Logorrhoea [Recovered/Resolved]
  - Disinhibition [Recovered/Resolved]
  - Stupor [Recovered/Resolved]
  - Muscle rigidity [Recovered/Resolved]
  - Negativism [Recovered/Resolved]
  - Bladder dysfunction [Recovered/Resolved]
  - Psychomotor hyperactivity [Recovered/Resolved]
  - Escherichia test positive [Recovered/Resolved]
  - Confusional state [Recovered/Resolved]
  - Disorientation [Recovered/Resolved]
  - Anxiety [Recovered/Resolved]
  - Mutism [Recovered/Resolved]
  - Verbigeration [Recovered/Resolved]
  - Stereotypy [Recovered/Resolved]
  - Waxy flexibility [Recovered/Resolved]
  - Hyperhidrosis [Recovered/Resolved]
  - Urinary retention [Recovered/Resolved]
